FAERS Safety Report 5778798-X (Version None)
Quarter: 2008Q2

REPORT INFORMATION
  Report Type: 
  Country: None (occurrence: None)
  Receive Date: 20080619
  Receipt Date: 20080610
  Transmission Date: 20081010
  Serious: Yes (Other)
  Sender: FDA-Public Use
  Company Number: PHHY2008CN10366

PATIENT
  Age: 25 Year
  Sex: Female

DRUGS (2)
  1. SEBIVO [Suspect]
     Indication: HEPATITIS B
     Dosage: 600 MG, QD
     Route: 048
     Dates: start: 20080301
  2. INTRON A [Suspect]
     Indication: HEPATITIS B
     Dosage: 5000000 U, QOD
     Route: 030
     Dates: start: 20070101

REACTIONS (5)
  - ANAESTHESIA [None]
  - DYSAESTHESIA [None]
  - HYPOAESTHESIA [None]
  - MUSCULAR WEAKNESS [None]
  - PARAESTHESIA [None]
